FAERS Safety Report 25363186 (Version 1)
Quarter: 2025Q2

REPORT INFORMATION
  Report Type: Spontaneous
  Country: ES (occurrence: ES)
  Receive Date: 20250527
  Receipt Date: 20250527
  Transmission Date: 20250716
  Serious: Yes (Hospitalization)
  Sender: TEVA
  Company Number: None

PATIENT
  Age: 66 Year
  Sex: Male
  Weight: 84 kg

DRUGS (6)
  1. BISOPROLOL [Suspect]
     Active Substance: BISOPROLOL
     Indication: Product used for unknown indication
     Dosage: 1/24H; BISOPROLOL (2328A)
     Route: 065
     Dates: start: 20211110
  2. CARBOCYSTEINE\PROMETHAZINE HYDROCHLORIDE [Suspect]
     Active Substance: CARBOCYSTEINE\PROMETHAZINE HYDROCHLORIDE
     Indication: Product used for unknown indication
     Dosage: 5/8H; 20 MG/ML + 0.5 MG/ML ORAL SOLUTION/SUSPENSION
     Route: 065
     Dates: start: 20241117
  3. TRAZODONE [Suspect]
     Active Substance: TRAZODONE HYDROCHLORIDE
     Indication: Product used for unknown indication
     Dosage: 1/24H; TRAZODONE (3160A)
     Route: 065
     Dates: start: 20201119
  4. TELMISARTAN [Suspect]
     Active Substance: TELMISARTAN
     Indication: Product used for unknown indication
     Dosage: 1/24H; TELMISARTAN (1099A)
     Route: 065
     Dates: start: 20240617
  5. TERAZOSIN [Concomitant]
     Active Substance: TERAZOSIN HYDROCHLORIDE
     Indication: Product used for unknown indication
     Dosage: 1/24H; TERAZOSIN (2402A)
     Route: 065
     Dates: start: 20190617
  6. ARCOXIA [Suspect]
     Active Substance: ETORICOXIB
     Indication: Nasopharyngitis
     Dosage: ONE EVERY 8 HOURS; 28 TABLETS
     Route: 048
     Dates: start: 20241117, end: 20241120

REACTIONS (3)
  - Melaena [Recovered/Resolved]
  - Abdominal pain [Recovered/Resolved]
  - Malaise [Recovered/Resolved]

NARRATIVE: CASE EVENT DATE: 20241117
